FAERS Safety Report 9512403 (Version 2)
Quarter: 2014Q1

REPORT INFORMATION
  Report Type: Spontaneous
  Country: US (occurrence: None)
  Receive Date: 20130305
  Receipt Date: 20140306
  Transmission Date: 20141002
  Serious: Yes (Other)
  Sender: FDA-Public Use
  Company Number: 163-21880-12052346

PATIENT
  Age: 86 Year
  Sex: Male
  Weight: 57.11 kg

DRUGS (11)
  1. REVLIMID(LENALIDOMIDE)(25 MILLIGRAM, CAPSULES) [Suspect]
     Indication: PLASMA CELL MYELOMA
     Dosage: 21 IN 21D
     Dates: start: 20111026
  2. MIRALAX (MACROGOL) [Concomitant]
  3. CALCIUM D (OS-CAL) [Concomitant]
  4. ALPRAZOLAM (ALPRAZOLAM) [Concomitant]
  5. OMEPRAZOLE (OMEPRAZOLE) [Concomitant]
  6. TRANXENE-T (CLORAZEPATE DIPOTASSIUM) [Concomitant]
  7. RECLAST (ZOLEDRONIC ACID) [Concomitant]
  8. ASPIRIN (ACETYLSALICYLIC ACID) [Concomitant]
  9. CRESTOR (ROSUVASTATIN) [Concomitant]
  10. VITAMIN B COMPLEX (B-COMPLEX ^LECIVA^) [Concomitant]
  11. VITAMIN D (ERGOCALCIFEROL) [Concomitant]

REACTIONS (5)
  - Gastrointestinal disorder [None]
  - Abdominal pain [None]
  - Diarrhoea [None]
  - Constipation [None]
  - Drug dose omission [None]
